FAERS Safety Report 4673421-X (Version None)
Quarter: 2005Q2

REPORT INFORMATION
  Report Type: 
  Country: None (occurrence: None)
  Receive Date: 20050525
  Receipt Date: 20050517
  Transmission Date: 20051028
  Serious: Yes (Hospitalization)
  Sender: FDA-Public Use
  Company Number: MCN # S05-USA-01759-01

PATIENT
  Age: 36 Year
  Sex: Female

DRUGS (2)
  1. WELLBUTRIN [Suspect]
     Indication: DEPRESSION
     Dosage: 150MG PER DAY
     Route: 048
     Dates: start: 20050221
  2. LEXAPRO [Suspect]
     Indication: DEPRESSION
     Dosage: 40MG PER DAY
     Route: 048
     Dates: start: 20040401, end: 20050323

REACTIONS (6)
  - DIPLOPIA [None]
  - DRUG INTERACTION [None]
  - FACIAL PALSY [None]
  - NAUSEA [None]
  - VERTIGO [None]
  - VOMITING [None]
